FAERS Safety Report 8904497 (Version 1)
Quarter: 2012Q4

REPORT INFORMATION
  Report Type: 
  Country: IT (occurrence: IT)
  Receive Date: 20121110
  Receipt Date: 20121110
  Transmission Date: 20130627
  Serious: Yes (Other)
  Sender: FDA-Public Use
  Company Number: IT-009507513-1210ITA011393

PATIENT
  Age: 34 Year
  Sex: Female

DRUGS (1)
  1. GONADOTROPIN, CHORIONIC [Suspect]
     Indication: OVULATION INDUCTION
     Dosage: 5000 IU, Once

REACTIONS (1)
  - Ischaemic stroke [Unknown]
